FAERS Safety Report 14384795 (Version 2)
Quarter: 2018Q1

REPORT INFORMATION
  Report Type: Report from Study
  Country: None (occurrence: CA)
  Receive Date: 20180115
  Receipt Date: 20180201
  Transmission Date: 20180509
  Serious: Yes (Other)
  Sender: FDA-Public Use
  Company Number: CA-ABBVIE-17K-028-2202346-00

PATIENT
  Sex: Female

DRUGS (1)
  1. HUMIRA [Suspect]
     Active Substance: ADALIMUMAB
     Indication: RHEUMATOID ARTHRITIS
     Route: 058
     Dates: start: 20110802

REACTIONS (4)
  - Incision site erythema [Not Recovered/Not Resolved]
  - Musculoskeletal pain [Unknown]
  - Arthralgia [Unknown]
  - Nasal cyst [Not Recovered/Not Resolved]

NARRATIVE: CASE EVENT DATE: 2017
